FAERS Safety Report 7554372-X (Version None)
Quarter: 2011Q2

REPORT INFORMATION
  Report Type: 
  Country: None (occurrence: None)
  Receive Date: 20110617
  Receipt Date: 20110607
  Transmission Date: 20111010
  Serious: Yes (Hospitalization, Other)
  Sender: FDA-Public Use
  Company Number: US-ROCHE-734319

PATIENT
  Sex: Male
  Weight: 127 kg

DRUGS (2)
  1. ACCUTANE [Suspect]
     Route: 065
     Dates: start: 20000101, end: 20011231
  2. ACCUTANE [Suspect]
     Indication: ACNE
     Route: 065
     Dates: start: 19830101, end: 19840101

REACTIONS (9)
  - SUICIDE ATTEMPT [None]
  - COLITIS ULCERATIVE [None]
  - INFLAMMATORY BOWEL DISEASE [None]
  - PULMONARY EMBOLISM [None]
  - MAJOR DEPRESSION [None]
  - ANAL ABSCESS [None]
  - SUICIDAL IDEATION [None]
  - DEEP VEIN THROMBOSIS [None]
  - GASTROINTESTINAL INJURY [None]
